FAERS Safety Report 9350856 (Version 2)
Quarter: 2013Q3

REPORT INFORMATION
  Report Type: Spontaneous
  Country: US (occurrence: US)
  Receive Date: 20130617
  Receipt Date: 20130730
  Transmission Date: 20140515
  Serious: Yes (Other)
  Sender: FDA-Public Use
  Company Number: US-ASTELLAS-2013US006166

PATIENT
  Age: 58 Year
  Sex: Male
  Weight: 122 kg

DRUGS (1)
  1. PROGRAF [Suspect]
     Indication: LIVER TRANSPLANT
     Dosage: UNK
     Route: 065

REACTIONS (3)
  - Renal transplant [Recovered/Resolved]
  - Diabetes mellitus [Unknown]
  - Hypertension [Unknown]
